FAERS Safety Report 4845276-1 (Version None)
Quarter: 2005Q4

REPORT INFORMATION
  Report Type: 
  Country: None (occurrence: None)
  Receive Date: 20051125
  Receipt Date: 20051116
  Transmission Date: 20060501
  Serious: Yes (Hospitalization, Other)
  Sender: FDA-Public Use
  Company Number: 2005157840

PATIENT
  Age: 66 Year
  Sex: Female
  Weight: 63.5036 kg

DRUGS (3)
  1. ZOLOFT [Suspect]
     Indication: DEPRESSION
     Dosage: 150 MG (1 IN 1 D), ORAL
     Route: 048
     Dates: end: 20051001
  2. COZAAR [Suspect]
     Indication: STRESS INCONTINENCE
     Dosage: ORAL
     Route: 048
     Dates: start: 20051001
  3. HYZAAR [Concomitant]

REACTIONS (15)
  - AGGRESSION [None]
  - ARTHRALGIA [None]
  - BONE PAIN [None]
  - BRONCHITIS [None]
  - FATIGUE [None]
  - FLUID RETENTION [None]
  - HEADACHE [None]
  - INFLUENZA LIKE ILLNESS [None]
  - LETHARGY [None]
  - MYALGIA [None]
  - PAIN [None]
  - STOMACH DISCOMFORT [None]
  - STRESS INCONTINENCE [None]
  - TREATMENT NONCOMPLIANCE [None]
  - WEIGHT INCREASED [None]
